FAERS Safety Report 18569281 (Version 2)
Quarter: 2021Q1

REPORT INFORMATION
  Report Type: Spontaneous
  Country: US (occurrence: US)
  Receive Date: 20201202
  Receipt Date: 20210115
  Transmission Date: 20210419
  Serious: Yes (Hospitalization, Other)
  Sender: FDA-Public Use
  Company Number: US-DECIPHERA PHARMACEUTICALS LLC-2020-US-000476

PATIENT
  Sex: Female

DRUGS (1)
  1. QINLOCK [Suspect]
     Active Substance: RIPRETINIB
     Indication: GASTROINTESTINAL STROMAL TUMOUR
     Dosage: 150 MILLIGRAM, QD
     Route: 048
     Dates: start: 20200915, end: 202011

REACTIONS (8)
  - Somnolence [Unknown]
  - Hospitalisation [Unknown]
  - Drug ineffective [Unknown]
  - Disease progression [Unknown]
  - Fatigue [Unknown]
  - Product administration interrupted [Unknown]
  - Alopecia [Unknown]
  - Headache [Unknown]
